FAERS Safety Report 4947322-3 (Version None)
Quarter: 2006Q1

REPORT INFORMATION
  Report Type: 
  Country: None (occurrence: None)
  Receive Date: 20060317
  Receipt Date: 20050314
  Transmission Date: 20060701
  Serious: Yes (Other)
  Sender: FDA-Public Use
  Company Number: IN-BOEHRINGER INGELHEIM PHARMACEUTICALS, INC.-2005-UK-00448UK

PATIENT
  Sex: Male
  Weight: 88 kg

DRUGS (6)
  1. MICARDIS [Suspect]
     Indication: CEREBROVASCULAR ACCIDENT PROPHYLAXIS
     Route: 048
     Dates: start: 20050311, end: 20050313
  2. CLOPIDOGREL [Suspect]
     Indication: CEREBROVASCULAR ACCIDENT PROPHYLAXIS
     Route: 048
     Dates: start: 20050311, end: 20050313
  3. PLACEBO [Suspect]
     Indication: CEREBROVASCULAR ACCIDENT PROPHYLAXIS
     Route: 048
     Dates: start: 20050311, end: 20050313
  4. ATENOLOL [Concomitant]
     Indication: HYPERTENSION
     Route: 048
     Dates: start: 20050218
  5. SIMVASTATIN [Concomitant]
     Indication: HYPERLIPIDAEMIA
     Route: 048
     Dates: start: 20050218, end: 20050314
  6. GABAPENTIN [Concomitant]
     Indication: PARAESTHESIA
     Dosage: 300MG TWICE DAILY
     Route: 048
     Dates: start: 20050218, end: 20050314

REACTIONS (2)
  - ERYTHEMA MULTIFORME [None]
  - ORAL SOFT TISSUE DISORDER [None]
